FAERS Safety Report 11564083 (Version 1)
Quarter: 2015Q3

REPORT INFORMATION
  Report Type: Spontaneous
  Country: US (occurrence: US)
  Receive Date: 20150928
  Receipt Date: 20150928
  Transmission Date: 20151125
  Serious: Yes (Other)
  Sender: FDA-Public Use
  Company Number: US-MYLANLABS-2015M1032521

PATIENT

DRUGS (3)
  1. MORPHINE [Suspect]
     Active Substance: MORPHINE
     Indication: PAIN
     Dosage: 1 MG,PER HOUR
     Route: 041
  2. MORPHINE [Suspect]
     Active Substance: MORPHINE
     Dosage: 2 MG, UNK
     Route: 040
  3. MORPHINE [Suspect]
     Active Substance: MORPHINE
     Dosage: 5 MG
     Route: 041

REACTIONS (1)
  - Neurotoxicity [Unknown]
